FAERS Safety Report 5310981-X (Version None)
Quarter: 2007Q2

REPORT INFORMATION
  Report Type: 
  Country: None (occurrence: None)
  Receive Date: 20070430
  Receipt Date: 20070419
  Transmission Date: 20071010
  Serious: Yes (Other)
  Sender: FDA-Public Use
  Company Number: US-JNJFOC-20070106142

PATIENT
  Sex: Male
  Weight: 95 kg

DRUGS (14)
  1. FENTANYL TRANSDERMAL SYSTEM [Suspect]
     Indication: CLUSTER HEADACHE
     Route: 062
  2. PLAVIX [Concomitant]
     Indication: CARDIAC DISORDER
     Route: 048
  3. ZOLOFT [Concomitant]
     Indication: DEPRESSION
     Route: 048
  4. CORDARONE [Concomitant]
     Indication: CARDIAC DISORDER
     Route: 048
  5. TEMAZEPAM [Concomitant]
     Indication: SLEEP DISORDER
     Dosage: IF NECESSARY AT BEDTIME
     Route: 048
  6. ASPIRIN [Concomitant]
     Indication: CARDIAC DISORDER
     Route: 048
  7. DEPAKOTE ER [Concomitant]
     Indication: CARDIAC DISORDER
     Route: 048
  8. ANTIVERT [Concomitant]
     Indication: DIZZINESS
     Route: 048
  9. SINEMET [Concomitant]
     Indication: PARKINSON'S DISEASE
     Dosage: 25-100
     Route: 048
  10. SYMMETREL [Concomitant]
     Indication: DRUG USE FOR UNKNOWN INDICATION
     Route: 048
  11. ZANTAC [Concomitant]
     Indication: GASTROOESOPHAGEAL REFLUX DISEASE
     Route: 048
  12. METOPROTOL [Concomitant]
     Indication: BLOOD PRESSURE
     Route: 048
  13. GLUCOPHAGE [Concomitant]
     Indication: DIABETES MELLITUS
     Dosage: AS NEEDED FOR BLOOD SUGARS LESS THAN 100
     Route: 048
  14. MORPHINE [Concomitant]
     Route: 065

REACTIONS (6)
  - CONFUSIONAL STATE [None]
  - DISORIENTATION [None]
  - FALL [None]
  - FEEDING DISORDER [None]
  - MUSCULAR WEAKNESS [None]
  - SOMNOLENCE [None]
